APPROVED DRUG PRODUCT: DUTASTERIDE
Active Ingredient: DUTASTERIDE
Strength: 0.5MG
Dosage Form/Route: CAPSULE;ORAL
Application: A203241 | Product #001
Applicant: PHARMOBEDIENT CONSULTING LLC
Approved: Jun 14, 2016 | RLD: No | RS: No | Type: DISCN